FAERS Safety Report 7305795-5 (Version None)
Quarter: 2011Q1

REPORT INFORMATION
  Report Type: 
  Country: None (occurrence: None)
  Receive Date: 20110222
  Receipt Date: 20110216
  Transmission Date: 20110831
  Serious: Yes (Hospitalization)
  Sender: FDA-Public Use
  Company Number: B0701094A

PATIENT
  Sex: Female

DRUGS (5)
  1. HEPSERA [Concomitant]
     Route: 065
     Dates: start: 20101123, end: 20110101
  2. ZEFFIX [Suspect]
     Route: 065
     Dates: start: 20050117, end: 20110101
  3. ANTIHYPERTENSIVE [Concomitant]
  4. BARACLUDE [Concomitant]
  5. DIABETES MEDICATION [Concomitant]

REACTIONS (2)
  - CONDITION AGGRAVATED [None]
  - DRUG RESISTANCE [None]
